FAERS Safety Report 5464434-9 (Version None)
Quarter: 2007Q3

REPORT INFORMATION
  Report Type: 
  Country: None (occurrence: None)
  Receive Date: 20070921
  Receipt Date: 20070912
  Transmission Date: 20080115
  Serious: Yes (Death)
  Sender: FDA-Public Use
  Company Number: LB-SANOFI-SYNTHELABO-A01200710310

PATIENT
  Sex: Male

DRUGS (1)
  1. PLAVIX [Suspect]
     Indication: ANGINA UNSTABLE
     Route: 048
     Dates: start: 20070501, end: 20070709

REACTIONS (3)
  - ANGINA UNSTABLE [None]
  - CARDIAC FAILURE [None]
  - MYOCARDIAL INFARCTION [None]
